FAERS Safety Report 19477156 (Version 1)
Quarter: 2021Q2

REPORT INFORMATION
  Report Type: Spontaneous
  Country: US (occurrence: US)
  Receive Date: 20210629
  Receipt Date: 20210629
  Transmission Date: 20210717
  Serious: No
  Sender: FDA-Public Use
  Company Number: None

PATIENT
  Sex: Male
  Weight: 116.55 kg

DRUGS (2)
  1. POMALYST [Concomitant]
     Active Substance: POMALIDOMIDE
  2. DEXAMETHASONE. [Suspect]
     Active Substance: DEXAMETHASONE
     Indication: PLASMA CELL MYELOMA
     Dosage: ?          OTHER FREQUENCY:WEEKLY;?
     Route: 048
     Dates: start: 20210130

REACTIONS (1)
  - Disease progression [None]
